FAERS Safety Report 7597938-3 (Version None)
Quarter: 2011Q3

REPORT INFORMATION
  Report Type: 
  Country: None (occurrence: None)
  Receive Date: 20110708
  Receipt Date: 20110627
  Transmission Date: 20111222
  Serious: Yes (Death)
  Sender: FDA-Public Use
  Company Number: US-PFIZER INC-2011064844

PATIENT
  Sex: Male
  Weight: 95.238 kg

DRUGS (16)
  1. NEXIUM [Concomitant]
     Dosage: 20 MG, UNK
     Dates: start: 20101119
  2. HYDROCHLOROTHIAZIDE [Concomitant]
     Dosage: UNK
     Route: 048
     Dates: start: 19960101
  3. TAMSULOSIN [Concomitant]
     Dosage: UNK
     Route: 048
     Dates: start: 20080101
  4. MULTI-VITAMINS [Concomitant]
     Dosage: UNK
     Route: 048
     Dates: start: 19800101
  5. ALBUTEROL SULFATE AUTOHALER [Concomitant]
     Dosage: UNK
     Route: 055
     Dates: start: 20101127
  6. DULCOLAX [Concomitant]
     Dosage: UNK
     Route: 048
     Dates: start: 20100601
  7. DABIGATRAN ETEXILATE [Concomitant]
     Dosage: UNK
     Route: 048
     Dates: start: 20110103
  8. NITROSTAT [Concomitant]
     Dosage: UNK
     Route: 048
     Dates: start: 19960101
  9. EZETIMIBE [Concomitant]
     Dosage: UNK
     Route: 048
     Dates: start: 20100401
  10. SODIUM PHOSPHATES [Concomitant]
     Dosage: UNK
     Route: 054
     Dates: start: 20110118
  11. CELECOXIB [Suspect]
     Indication: OSTEOARTHRITIS
     Dosage: 100 MG, 2X/DAY
     Route: 048
     Dates: start: 20101119
  12. AMIODARONE [Concomitant]
     Dosage: UNK
     Route: 048
     Dates: start: 20110103
  13. ROSUVASTATIN [Concomitant]
     Dosage: UNK
     Route: 048
     Dates: start: 20080101
  14. FEXOFENADINE [Concomitant]
     Dosage: UNK
     Route: 048
     Dates: start: 20080101
  15. OSTEO BI-FLEX [Concomitant]
     Dosage: UNK
     Route: 048
     Dates: start: 20100401
  16. METOPROLOL TARTRATE [Concomitant]
     Dosage: UNK
     Route: 048
     Dates: start: 20101127

REACTIONS (1)
  - ARTERIOSCLEROSIS [None]
